FAERS Safety Report 21342813 (Version 7)
Quarter: 2022Q4

REPORT INFORMATION
  Report Type: Report from Study
  Country: CN (occurrence: CN)
  Receive Date: 20220916
  Receipt Date: 20221111
  Transmission Date: 20230113
  Serious: Yes (Hospitalization)
  Sender: FDA-Public Use
  Company Number: CN-GLAXOSMITHKLINE-CN2022GSK108493

PATIENT

DRUGS (36)
  1. BELANTAMAB MAFODOTIN [Suspect]
     Active Substance: BELANTAMAB MAFODOTIN
     Indication: Plasma cell myeloma
     Dosage: 134.7 MG, CYC (2.5 MG/KG)
     Route: 042
     Dates: start: 20220711, end: 20220712
  2. BELANTAMAB MAFODOTIN [Suspect]
     Active Substance: BELANTAMAB MAFODOTIN
     Dosage: 102.41 MG, CYC (1.90 MG/KG)
     Route: 042
     Dates: start: 20220802, end: 20220802
  3. HYALURONATE SODIUM [Concomitant]
     Active Substance: HYALURONATE SODIUM
     Indication: Eye disorder
     Dosage: 4 GTT, (Q6H)
     Route: 050
     Dates: start: 20220711
  4. PROMETHAZINE [Concomitant]
     Active Substance: PROMETHAZINE HYDROCHLORIDE
     Indication: Prophylaxis
     Dosage: 25 MG, SINGLE
     Route: 042
     Dates: start: 20220711, end: 20220711
  5. PROMETHAZINE [Concomitant]
     Active Substance: PROMETHAZINE HYDROCHLORIDE
     Dosage: 50 MG, SINGLE
     Route: 030
     Dates: start: 20220802, end: 20220802
  6. PALONOSETRON HYDROCHLORIDE [Concomitant]
     Active Substance: PALONOSETRON HYDROCHLORIDE
     Indication: Prophylaxis
     Dosage: 0.25 MG, SINGLE
     Route: 042
     Dates: start: 20220711, end: 20220711
  7. PALONOSETRON HYDROCHLORIDE [Concomitant]
     Active Substance: PALONOSETRON HYDROCHLORIDE
     Dosage: 0.25 MG, SINGLE
     Route: 042
     Dates: start: 20220802, end: 20220802
  8. OMEPRAZOLE [Concomitant]
     Active Substance: OMEPRAZOLE
     Indication: Prophylaxis
     Dosage: 40 MG, SINGLE
     Route: 042
     Dates: start: 20220711, end: 20220711
  9. OMEPRAZOLE [Concomitant]
     Active Substance: OMEPRAZOLE
     Dosage: 40 MG, SINGLE
     Route: 042
     Dates: start: 20220802, end: 20220802
  10. MAGNESIUM ISOGLYCYRRHIZINATE [Concomitant]
     Active Substance: MAGNESIUM ISOGLYCYRRHIZINATE
     Indication: Prophylaxis
     Dosage: 150 MG, SINGLE
     Route: 042
     Dates: start: 20220711, end: 20220711
  11. VITAMIN C [Concomitant]
     Active Substance: ASCORBIC ACID
     Indication: Prophylaxis
     Dosage: 0.5 G, SINGLE
     Route: 042
     Dates: start: 20220711, end: 20220711
  12. METHYLPREDNISOLONE [Concomitant]
     Active Substance: METHYLPREDNISOLONE
     Indication: Prophylaxis
     Dosage: 20 MG, SINGLE
     Route: 042
     Dates: start: 20220711, end: 20220711
  13. METHYLPREDNISOLONE [Concomitant]
     Active Substance: METHYLPREDNISOLONE
     Dosage: 20 MG, SINGLE
     Route: 042
     Dates: start: 20220802, end: 20220802
  14. LORATADINE [Concomitant]
     Active Substance: LORATADINE
     Indication: Prophylaxis
     Dosage: 10 MG, SINGLE
     Route: 048
     Dates: start: 20220711, end: 20220711
  15. SODIUM BICARBONATE [Concomitant]
     Active Substance: SODIUM BICARBONATE
     Indication: Prophylaxis
     Dosage: 125 ML, SINGLE
     Route: 015
     Dates: start: 20220711, end: 20220711
  16. SODIUM BICARBONATE [Concomitant]
     Active Substance: SODIUM BICARBONATE
     Dosage: 125 ML, SINGLE
     Route: 042
     Dates: start: 20220802, end: 20220802
  17. IBUPROFEN [Concomitant]
     Active Substance: IBUPROFEN
     Indication: Prophylaxis
     Dosage: 0.2 G, SINGLE
     Route: 048
     Dates: start: 20220711, end: 20220711
  18. IBUPROFEN [Concomitant]
     Active Substance: IBUPROFEN
     Indication: Pyrexia
     Dosage: 0.2 G, SINGLE
     Route: 048
     Dates: start: 20220802, end: 20220802
  19. DEXAMETHASONE [Concomitant]
     Active Substance: DEXAMETHASONE
     Indication: Prophylaxis
     Dosage: 3 MG, SINGLE
     Route: 042
     Dates: start: 20220711, end: 20220711
  20. DEXAMETHASONE [Concomitant]
     Active Substance: DEXAMETHASONE
     Indication: Infusion related reaction
     Dosage: 5 MG, SINGLE
     Route: 042
     Dates: start: 20220725, end: 20220725
  21. ESTAZOLAM [Concomitant]
     Active Substance: ESTAZOLAM
     Indication: Insomnia
     Dosage: 1 MG, QD
     Route: 048
     Dates: start: 2007
  22. ALLOPURINOL [Concomitant]
     Active Substance: ALLOPURINOL
     Indication: Hyperuricaemia
     Dosage: 0.1 G, SINGLE
     Route: 048
     Dates: start: 20220712, end: 20220712
  23. ALLOPURINOL [Concomitant]
     Active Substance: ALLOPURINOL
     Dosage: 0.1 G, SINGLE
     Route: 048
     Dates: start: 20220802, end: 20220802
  24. METHYLCOBALAMIN [Concomitant]
     Active Substance: METHYLCOBALAMIN
     Indication: Hypoaesthesia
     Dosage: 0.5 MG, TID
     Route: 048
     Dates: start: 202201
  25. VITAMIN B1 [Concomitant]
     Active Substance: THIAMINE HYDROCHLORIDE
     Indication: Hypoaesthesia
     Dosage: 10 MG, TID
     Route: 048
     Dates: start: 202201
  26. CALCIUM CARBONATE [Concomitant]
     Active Substance: CALCIUM CARBONATE
     Indication: Osteoporosis
     Dosage: 600 MG, QD
     Route: 048
  27. ZOLEDRONIC ACID [Concomitant]
     Active Substance: ZOLEDRONIC ACID
     Indication: Osteoporosis
     Dosage: 4 MG, Z (Q4D)
     Route: 042
     Dates: start: 2020
  28. TRAMADOL [Concomitant]
     Active Substance: TRAMADOL
     Indication: Bone pain
     Dosage: 0.1 G, PRN
     Route: 048
     Dates: start: 2021, end: 20220728
  29. TRAMADOL [Concomitant]
     Active Substance: TRAMADOL
     Dosage: 0.1 G, BID
     Route: 048
     Dates: start: 20220728, end: 20220802
  30. TRAMADOL [Concomitant]
     Active Substance: TRAMADOL
     Dosage: 0.1 G, PRN
     Route: 048
     Dates: start: 20220801, end: 20220808
  31. LIDOCAINE [Concomitant]
     Active Substance: LIDOCAINE
     Indication: Local anaesthesia
     Dosage: 100 MG
     Route: 065
     Dates: start: 20220628, end: 20220628
  32. CEFOPERAZONE SODIUM\SULBACTAM SODIUM [Concomitant]
     Active Substance: CEFOPERAZONE SODIUM\SULBACTAM SODIUM
     Indication: Infection prophylaxis
     Dosage: 3 G, Z, Q12H
     Route: 042
     Dates: start: 20220711, end: 20220712
  33. DEXTROSE [Concomitant]
     Active Substance: DEXTROSE
     Indication: Fluid replacement
     Dosage: 500 ML, SINGLE
     Route: 042
     Dates: start: 20220711, end: 20220711
  34. DEXTROSE [Concomitant]
     Active Substance: DEXTROSE
     Dosage: 500 ML, SINGLE
     Route: 042
     Dates: start: 20220802, end: 20220802
  35. CEFUROXIME [Concomitant]
     Active Substance: CEFUROXIME
     Indication: Polyuria
     Dosage: 10 MG, SINGLE
     Route: 042
     Dates: start: 20220711, end: 20220711
  36. CEFUROXIME [Concomitant]
     Active Substance: CEFUROXIME
     Dosage: 10 MG, SINGLE
     Route: 042
     Dates: start: 20220802, end: 20220802

REACTIONS (1)
  - Myelosuppression [Not Recovered/Not Resolved]

NARRATIVE: CASE EVENT DATE: 20220718
